FAERS Safety Report 6576830-7 (Version None)
Quarter: 2010Q1

REPORT INFORMATION
  Report Type: 
  Country: None (occurrence: None)
  Receive Date: 20100210
  Receipt Date: 20100201
  Transmission Date: 20100710
  Serious: Yes (Hospitalization, Other)
  Sender: FDA-Public Use
  Company Number: US-ELI_LILLY_AND_COMPANY-US201002000888

PATIENT
  Sex: Male
  Weight: 88 kg

DRUGS (32)
  1. CYMBALTA [Suspect]
     Dosage: 1 D/F, UNK
     Dates: start: 20050926
  2. HEPARIN [Concomitant]
  3. EPTIFIBATIDE [Concomitant]
  4. DOCUSATE SODIUM [Concomitant]
  5. ONDANSETRON [Concomitant]
  6. BISACODYL [Concomitant]
  7. PROMETHAZINE [Concomitant]
  8. NITROSTAT [Concomitant]
     Dosage: UNK, UNK
     Dates: start: 20030805
  9. NITROSTAT [Concomitant]
     Dates: start: 20061012, end: 20061012
  10. FOLIC ACID [Concomitant]
     Dates: start: 20030805
  11. MULTI-VITAMIN [Concomitant]
     Dates: start: 20030805
  12. MORPHINE SULFATE [Concomitant]
     Dosage: UNK, UNK
     Dates: start: 20061012, end: 20061012
  13. ALBUTEROL [Concomitant]
     Dates: start: 20030917
  14. FLUTICASONE PROPIONATE [Concomitant]
     Dates: start: 20030917
  15. TIZANIDINE HYDROCHLORIDE [Concomitant]
     Dates: start: 20060927, end: 20061003
  16. DIAZEPAM [Concomitant]
     Dates: start: 19990625
  17. LIDODERM [Concomitant]
     Dates: start: 20031104
  18. HYDROMORPHONE HYDROCHLORIDE [Concomitant]
     Dates: start: 20050623
  19. EZETIMIBE [Concomitant]
     Dates: start: 20040130
  20. LORATADINE [Concomitant]
     Dates: start: 20041209
  21. ESOMEPRAZOLE [Concomitant]
     Dates: start: 20030917
  22. FUROSEMIDE [Concomitant]
     Dates: start: 20050825
  23. ISOSORBIDE MONONITRATE [Concomitant]
     Dates: start: 20031104
  24. CAPTOPRIL [Concomitant]
     Dates: start: 19971231
  25. DIPHENHYDRAMINE HYDROCHLORIDE [Concomitant]
     Dates: start: 20061012, end: 20061012
  26. ATORVASTATIN [Concomitant]
     Dates: start: 19971231
  27. METOPROLOL TARTRATE [Concomitant]
     Dates: start: 19980528
  28. ASPIRIN [Concomitant]
  29. VITAMIN E [Concomitant]
     Dates: start: 20030923
  30. ACETAMINOPHEN [Concomitant]
     Dates: start: 20030805
  31. PANTOPRAZOLE [Concomitant]
     Dates: start: 20061014
  32. TOCOPHEROL CONCENTRATE CAP [Concomitant]

REACTIONS (5)
  - ALANINE AMINOTRANSFERASE INCREASED [None]
  - ASPARTATE AMINOTRANSFERASE INCREASED [None]
  - BLOOD ALKALINE PHOSPHATASE INCREASED [None]
  - BLOOD LACTATE DEHYDROGENASE INCREASED [None]
  - MYOCARDIAL INFARCTION [None]
